FAERS Safety Report 9705640 (Version 1)
Quarter: 2013Q4

REPORT INFORMATION
  Report Type: Spontaneous
  Country: US (occurrence: US)
  Receive Date: 20131122
  Receipt Date: 20131122
  Transmission Date: 20140711
  Serious: No
  Sender: FDA-Public Use
  Company Number: US-GILEAD-2008-0017357

PATIENT
  Age: 55 Year
  Sex: Female
  Weight: 86.18 kg

DRUGS (7)
  1. LETAIRIS [Suspect]
     Indication: PULMONARY ARTERIAL HYPERTENSION
     Route: 048
     Dates: start: 20080529
  2. NORVASC [Concomitant]
     Route: 048
  3. FLOVENT [Concomitant]
     Route: 055
  4. ALBUTEROL [Concomitant]
     Route: 055
  5. SINGULAIR [Concomitant]
     Route: 048
  6. SPIRIVA [Concomitant]
     Route: 055
  7. ZYRTEC [Concomitant]
     Route: 048

REACTIONS (3)
  - Oedema peripheral [None]
  - Nasal congestion [None]
  - Headache [Recovered/Resolved]
